FAERS Safety Report 6248906-5 (Version None)
Quarter: 2009Q2

REPORT INFORMATION
  Report Type: 
  Country: None (occurrence: None)
  Receive Date: 20090629
  Receipt Date: 20090629
  Transmission Date: 20091009
  Serious: Yes (Hospitalization, Other)
  Sender: FDA-Public Use
  Company Number: US-PFIZER INC-2009215169

PATIENT
  Age: 70 Year
  Sex: Female

DRUGS (2)
  1. GLUCOTROL [Suspect]
     Indication: DIABETES MELLITUS
     Dosage: UNK
  2. XELODA [Suspect]
     Dosage: 25 G, UNK

REACTIONS (2)
  - BLOOD GLUCOSE ABNORMAL [None]
  - INTENTIONAL OVERDOSE [None]
